FAERS Safety Report 6797390-1 (Version None)
Quarter: 2010Q2

REPORT INFORMATION
  Report Type: 
  Country: None (occurrence: None)
  Receive Date: 20100623
  Receipt Date: 20100607
  Transmission Date: 20101027
  Serious: Yes (Hospitalization)
  Sender: FDA-Public Use
  Company Number: TCI2010A01603

PATIENT
  Age: 75 Year
  Sex: Male

DRUGS (12)
  1. ACTOS [Suspect]
     Indication: DIABETES MELLITUS
     Dosage: 15 MG (15 MG, 1 IN 1 D) PER ORAL; 30 MG (15 MG, 2 IN 1 D) PER ORAL
     Route: 048
     Dates: start: 20070507, end: 20090829
  2. ACTOS [Suspect]
     Indication: DIABETES MELLITUS
     Dosage: 15 MG (15 MG, 1 IN 1 D) PER ORAL; 30 MG (15 MG, 2 IN 1 D) PER ORAL
     Route: 048
     Dates: start: 20090830, end: 20100413
  3. MEPIVACAINE HCL [Suspect]
     Indication: BACK PAIN
     Dosage: INJECTION
     Dates: start: 20100406, end: 20100411
  4. BOTULINUM TOXIN TYPE A [Suspect]
     Indication: BACK PAIN
     Dosage: INJECTION
     Dates: start: 20100406, end: 20100411
  5. SEIBULE (MIGLITOL) [Concomitant]
  6. AMARYL [Concomitant]
  7. ADALAT CC [Concomitant]
  8. ASPIRIN [Concomitant]
  9. DIOVAN [Concomitant]
  10. LOXONIN (LOXOPROFEN SODIUM) [Concomitant]
  11. TIZANIDINE HCL [Concomitant]
  12. CORTICOSTEROIDS [Concomitant]

REACTIONS (14)
  - BACK PAIN [None]
  - BRAIN NATRIURETIC PEPTIDE INCREASED [None]
  - CARDIAC FAILURE [None]
  - CARDIAC MURMUR [None]
  - CARDIOTHORACIC RATIO INCREASED [None]
  - DIABETES MELLITUS INADEQUATE CONTROL [None]
  - DYSGEUSIA [None]
  - DYSPNOEA [None]
  - GASTRITIS EROSIVE [None]
  - GASTROOESOPHAGEAL REFLUX DISEASE [None]
  - GENERALISED OEDEMA [None]
  - OXYGEN SATURATION DECREASED [None]
  - PLEURAL EFFUSION [None]
  - WEIGHT INCREASED [None]
